FAERS Safety Report 12042783 (Version 1)
Quarter: 2016Q1

REPORT INFORMATION
  Report Type: Other
  Country: US (occurrence: US)
  Receive Date: 20160208
  Receipt Date: 20160208
  Transmission Date: 20160526
  Serious: Yes (Hospitalization)
  Sender: FDA-Public Use
  Company Number: US-ANTARES PHARMA, INC.-2015-LIT-ME-0175

PATIENT
  Age: 83 Year
  Sex: Female

DRUGS (1)
  1. METHOTREXATE [Suspect]
     Active Substance: METHOTREXATE
     Indication: RHEUMATOID ARTHRITIS
     Dosage: 12.5 MG, QWK

REACTIONS (6)
  - Pancytopenia [None]
  - Rash vesicular [None]
  - Herpes zoster [None]
  - Klebsiella infection [Recovered/Resolved]
  - White blood cell count decreased [None]
  - Culture urine positive [None]
